FAERS Safety Report 19823132 (Version 3)
Quarter: 2022Q1

REPORT INFORMATION
  Report Type: Spontaneous
  Country: US (occurrence: US)
  Receive Date: 20210913
  Receipt Date: 20220310
  Transmission Date: 20220423
  Serious: Yes (Other)
  Sender: FDA-Public Use
  Company Number: US-GILEAD-2021-0547356

PATIENT
  Age: 53 Year
  Sex: Male
  Weight: 75.737 kg

DRUGS (60)
  1. TRUVADA [Suspect]
     Active Substance: EMTRICITABINE\TENOFOVIR DISOPROXIL FUMARATE
     Indication: HIV infection
     Dosage: UNK
     Route: 048
     Dates: start: 2010
  2. TRUVADA [Suspect]
     Active Substance: EMTRICITABINE\TENOFOVIR DISOPROXIL FUMARATE
     Dosage: UNK
     Route: 048
     Dates: start: 200707, end: 201701
  3. BIKTARVY [Concomitant]
     Active Substance: BICTEGRAVIR SODIUM\EMTRICITABINE\TENOFOVIR ALAFENAMIDE FUMARATE
  4. DESCOVY [Concomitant]
     Active Substance: EMTRICITABINE\TENOFOVIR ALAFENAMIDE FUMARATE
  5. GENVOYA [Concomitant]
     Active Substance: COBICISTAT\ELVITEGRAVIR\EMTRICITABINE\TENOFOVIR ALAFENAMIDE FUMARATE
  6. LEXIVA [Concomitant]
     Active Substance: FOSAMPRENAVIR CALCIUM
  7. NORVIR [Concomitant]
     Active Substance: RITONAVIR
  8. RETROVIR [Concomitant]
     Active Substance: ZIDOVUDINE
  9. SUSTIVA [Concomitant]
     Active Substance: EFAVIRENZ
  10. ACETAMINOPHEN\HYDROCODONE [Concomitant]
     Active Substance: ACETAMINOPHEN\HYDROCODONE
  11. ALPRAZOLAM [Concomitant]
     Active Substance: ALPRAZOLAM
  12. TEMAZEPAM [Concomitant]
     Active Substance: TEMAZEPAM
  13. CLARITIN [Concomitant]
     Active Substance: LORATADINE
  14. CITALOPRAM [Concomitant]
     Active Substance: CITALOPRAM HYDROBROMIDE
  15. ATENOLOL AND CHLORTHALIDONE [Concomitant]
     Active Substance: ATENOLOL\CHLORTHALIDONE
  16. NAPROXEN [Concomitant]
     Active Substance: NAPROXEN
  17. CYCLOBENZAPRINE [Concomitant]
     Active Substance: CYCLOBENZAPRINE
  18. PROMETHAZINE [Concomitant]
     Active Substance: PROMETHAZINE HYDROCHLORIDE
  19. AMLODIPINE BESYLATE [Concomitant]
     Active Substance: AMLODIPINE BESYLATE
  20. DOXYCYCLINE HYCLATE [Concomitant]
     Active Substance: DOXYCYCLINE HYCLATE
  21. PENICILLIN [Concomitant]
     Active Substance: PENICILLIN
  22. BECONASE AQ [Concomitant]
     Active Substance: BECLOMETHASONE DIPROPIONATE MONOHYDRATE
  23. SULFAMETHOXAZOLE [Concomitant]
     Active Substance: SULFAMETHOXAZOLE
  24. GABAPENTIN [Concomitant]
     Active Substance: GABAPENTIN
  25. GEMFIBROZIL [Concomitant]
     Active Substance: GEMFIBROZIL
  26. ACYCLOVIR [Concomitant]
     Active Substance: ACYCLOVIR
  27. PIOGLITAZONE [Concomitant]
     Active Substance: PIOGLITAZONE
  28. METHYLPREDNISOLONE [Concomitant]
     Active Substance: METHYLPREDNISOLONE
  29. GLIMEPIRIDE [Concomitant]
     Active Substance: GLIMEPIRIDE
  30. OXYCODONE [Concomitant]
     Active Substance: OXYCODONE
  31. ROSUVASTATIN [Concomitant]
     Active Substance: ROSUVASTATIN
  32. HYDROCODONE [Concomitant]
     Active Substance: HYDROCODONE
  33. LORATADINE [Concomitant]
     Active Substance: LORATADINE
  34. PROAIR HFA [Concomitant]
     Active Substance: ALBUTEROL SULFATE
  35. TRAMADOL [Concomitant]
     Active Substance: TRAMADOL
  36. IPRATROPIUM [Concomitant]
     Active Substance: IPRATROPIUM
  37. TRIAMCINOLONE [Concomitant]
     Active Substance: TRIAMCINOLONE
  38. AZITHROMYCIN [Concomitant]
     Active Substance: AZITHROMYCIN
  39. AVELOX [Concomitant]
     Active Substance: MOXIFLOXACIN HYDROCHLORIDE
  40. VENLAFAXINE HYDROCHLORIDE [Concomitant]
     Active Substance: VENLAFAXINE HYDROCHLORIDE
  41. FOSAMPRENAVIR CALCIUM [Concomitant]
     Active Substance: FOSAMPRENAVIR CALCIUM
  42. CELECOXIB [Concomitant]
     Active Substance: CELECOXIB
  43. DEXAMETHASONE [Concomitant]
     Active Substance: DEXAMETHASONE
  44. FLUTICASONE [Concomitant]
     Active Substance: FLUTICASONE
  45. PREDNISOLONE [Concomitant]
     Active Substance: PREDNISOLONE
  46. DICLOFENAC SODIUM [Concomitant]
     Active Substance: DICLOFENAC SODIUM
  47. ZYRTEC [Concomitant]
     Active Substance: CETIRIZINE HYDROCHLORIDE
  48. PRILOSEC [Concomitant]
     Active Substance: OMEPRAZOLE MAGNESIUM
  49. RESTORIL [Concomitant]
     Active Substance: TEMAZEPAM
  50. ALLEGRA [Concomitant]
     Active Substance: FEXOFENADINE HYDROCHLORIDE
  51. METOPROLOL [Concomitant]
     Active Substance: METOPROLOL
  52. VIAGRA [Concomitant]
     Active Substance: SILDENAFIL CITRATE
  53. LISINOPRIL [Concomitant]
     Active Substance: LISINOPRIL
  54. METFORMIN [Concomitant]
     Active Substance: METFORMIN HYDROCHLORIDE
  55. MUPIROCIN [Concomitant]
     Active Substance: MUPIROCIN
  56. TRILIPIX [Concomitant]
     Active Substance: FENOFIBRIC ACID
  57. PATANOL [Concomitant]
     Active Substance: OLOPATADINE HYDROCHLORIDE
  58. NORTRIPTYLINE [Concomitant]
     Active Substance: NORTRIPTYLINE
  59. CEFUROXIME [Concomitant]
     Active Substance: CEFUROXIME
  60. IBUPROFEN [Concomitant]
     Active Substance: IBUPROFEN

REACTIONS (11)
  - Chronic kidney disease [Not Recovered/Not Resolved]
  - Multiple fractures [Not Recovered/Not Resolved]
  - Compression fracture [Unknown]
  - Bone density decreased [Unknown]
  - Osteopenia [Not Recovered/Not Resolved]
  - Pain [Not Recovered/Not Resolved]
  - Emotional distress [Not Recovered/Not Resolved]
  - Anxiety [Not Recovered/Not Resolved]
  - Anhedonia [Not Recovered/Not Resolved]
  - Mobility decreased [Not Recovered/Not Resolved]
  - Gait disturbance [Not Recovered/Not Resolved]

NARRATIVE: CASE EVENT DATE: 20150701
